FAERS Safety Report 10251122 (Version 1)
Quarter: 2014Q2

REPORT INFORMATION
  Report Type: Spontaneous
  Country: BR (occurrence: BR)
  Receive Date: 20140620
  Receipt Date: 20140620
  Transmission Date: 20141212
  Serious: Yes (Hospitalization)
  Sender: FDA-Public Use
  Company Number: BR-B.I. PHARMACEUTICALS,INC./RIDGEFIELD-2014-BI-27676BR

PATIENT
  Age: 60 Year
  Sex: Male

DRUGS (3)
  1. TRAYENTA DUO [Suspect]
     Indication: TYPE 2 DIABETES MELLITUS
     Dosage: FORMULATION: COATED TABLET; DOSE PER APPLICATION: 2.5/1000 MG
     Route: 048
     Dates: start: 201402, end: 201402
  2. LANTUS [Concomitant]
     Indication: TYPE 2 DIABETES MELLITUS
     Route: 058
  3. LOSARTANA [Concomitant]
     Indication: HYPERTENSION
     Route: 048

REACTIONS (4)
  - Pancreatitis [Recovered/Resolved]
  - Diarrhoea [Recovered/Resolved]
  - Vomiting [Recovered/Resolved]
  - Nausea [Recovered/Resolved]
